FAERS Safety Report 11267049 (Version 1)
Quarter: 2015Q3

REPORT INFORMATION
  Report Type: Spontaneous
  Country: CN (occurrence: CN)
  Receive Date: 20150713
  Receipt Date: 20150713
  Transmission Date: 20151125
  Serious: Yes (Other)
  Sender: FDA-Public Use
  Company Number: CN-PFIZER INC-2015230250

PATIENT
  Age: 87 Year
  Sex: Male
  Weight: 51 kg

DRUGS (2)
  1. CITICOLINE SODIUM [Suspect]
     Active Substance: CITICOLINE SODIUM
     Indication: CEREBRAL INFARCTION
     Dosage: 0.5 G, 1X/DAY
     Route: 041
     Dates: start: 20150303, end: 20150320
  2. LIPITOR [Suspect]
     Active Substance: ATORVASTATIN CALCIUM
     Indication: CEREBRAL INFARCTION
     Dosage: 20 MG, 1X/DAY
     Route: 048
     Dates: start: 20150228, end: 20150320

REACTIONS (2)
  - Hepatocellular injury [Recovering/Resolving]
  - Bronchitis [Unknown]

NARRATIVE: CASE EVENT DATE: 20150318
